FAERS Safety Report 7260870-9 (Version None)
Quarter: 2011Q1

REPORT INFORMATION
  Report Type: 
  Country: None (occurrence: None)
  Receive Date: 20110130
  Receipt Date: 20101227
  Transmission Date: 20110831
  Serious: No
  Sender: FDA-Public Use
  Company Number: US-ABBOTT-10P-163-0693620-00

PATIENT
  Age: 61 Year
  Sex: Female

DRUGS (2)
  1. HUMIRA [Suspect]
     Indication: PRODUCT USED FOR UNKNOWN INDICATION
     Dates: start: 20101001
  2. MUCINEX [Concomitant]
     Indication: RHINITIS

REACTIONS (5)
  - CHILLS [None]
  - PAIN [None]
  - SINUS DISORDER [None]
  - COUGH [None]
  - RHINORRHOEA [None]
